FAERS Safety Report 6524911-6 (Version None)
Quarter: 2010Q1

REPORT INFORMATION
  Report Type: 
  Country: None (occurrence: None)
  Receive Date: 20100104
  Receipt Date: 20091221
  Transmission Date: 20100710
  Serious: Yes (Other)
  Sender: FDA-Public Use
  Company Number: JP-PFIZER INC-2009280094

PATIENT
  Age: 77 Year
  Sex: Female

DRUGS (5)
  1. ZITHROMAC SR [Suspect]
     Indication: GINGIVAL SWELLING
     Dosage: UNK
     Route: 048
     Dates: start: 20091002, end: 20091002
  2. FLOMOX [Concomitant]
     Dosage: UNK
     Route: 048
     Dates: start: 20090929, end: 20091001
  3. NIFEDIPINE [Concomitant]
     Indication: HYPERCHOLESTEROLAEMIA
     Dosage: UNK
     Route: 048
  4. SINLESTAL [Concomitant]
     Indication: HYPERCHOLESTEROLAEMIA
     Dosage: UNK
     Route: 048
  5. JUVELA NICOTINATE [Concomitant]
     Indication: HYPERCHOLESTEROLAEMIA
     Dosage: UNK
     Route: 048

REACTIONS (1)
  - COLITIS ISCHAEMIC [None]
